FAERS Safety Report 9008549 (Version 1)
Quarter: 2013Q1

REPORT INFORMATION
  Report Type: Spontaneous
  Country: HU (occurrence: HU)
  Receive Date: 20130111
  Receipt Date: 20130111
  Transmission Date: 20140127
  Serious: Yes (Other)
  Sender: FDA-Public Use
  Company Number: HU-PFIZER INC-2013011511

PATIENT
  Age: 78 Year
  Sex: Female
  Weight: 48 kg

DRUGS (10)
  1. XALATAN [Suspect]
     Indication: GLAUCOMA
     Dosage: 1 X1 DROP/DAY
     Route: 047
     Dates: start: 201108, end: 201109
  2. XALACOM [Suspect]
     Dosage: UNK
     Route: 047
  3. PANANGIN [Concomitant]
     Dosage: UNK
     Dates: start: 2012
  4. PAROXAT [Concomitant]
     Dosage: UNK
     Dates: start: 2011
  5. NITROMINT RETARD [Concomitant]
     Dosage: UNK
     Dates: start: 2006
  6. CAVINTON [Concomitant]
     Dosage: UNK
     Dates: start: 2011
  7. BETAGEN [Concomitant]
     Dosage: UNK
     Dates: start: 201211
  8. LETROX [Concomitant]
     Indication: THYROID DISORDER
     Dosage: UNK
     Dates: start: 2012
  9. XANAX [Concomitant]
     Dosage: UNK
     Dates: start: 2003
  10. PREDUCTAL [Concomitant]
     Dosage: UNK
     Dates: start: 2009

REACTIONS (2)
  - Intraocular pressure fluctuation [Unknown]
  - Visual impairment [Not Recovered/Not Resolved]
